FAERS Safety Report 9285801 (Version 3)
Quarter: 2013Q3

REPORT INFORMATION
  Report Type: Spontaneous
  Country: US (occurrence: US)
  Receive Date: 20130513
  Receipt Date: 20130813
  Transmission Date: 20140515
  Serious: Yes (Other)
  Sender: FDA-Public Use
  Company Number: US-PFIZER INC-2013142778

PATIENT
  Age: 59 Year
  Sex: Female

DRUGS (23)
  1. XELJANZ [Suspect]
     Indication: RHEUMATOID ARTHRITIS
     Dosage: 5 MG, BID 2X/DAY
     Route: 048
     Dates: start: 20121206, end: 20130101
  2. FOLIC ACID [Concomitant]
     Dosage: 2 MG, 1X/DAY (1 MG 2 ONCE A DAY)
     Dates: start: 19960816
  3. INSULIN [Concomitant]
     Dosage: UNK
     Dates: start: 20060806
  4. EVOXAC [Concomitant]
     Dosage: 30 MG, 3X/DAY
     Dates: start: 20060313
  5. ZANTAC [Concomitant]
     Dosage: 300 MG, 1X/DAY (1 EACH EVENING)
     Dates: start: 20080102
  6. CARAFATE [Concomitant]
     Dosage: 1 G, 4X/DAY  (2 TEASPOONS FOUR TIMES DAILY)
     Dates: start: 20080102
  7. CARAFATE [Concomitant]
     Dosage: 1 G, 4X/DAY
     Dates: start: 20120724
  8. CRESTOR [Concomitant]
     Dosage: 40 MG, 1X/DAY
     Dates: start: 20100817
  9. FLUOXETINE [Concomitant]
     Dosage: 40 MG, 1X/DAY (1 EACH MORNING)
     Dates: start: 20100817
  10. LIDODERM PATCH [Concomitant]
     Dosage: 5 %, UNK
     Dates: start: 20100817
  11. MYCELEX [Concomitant]
     Dosage: 10 MG, 4X/DAY
     Dates: start: 20120111
  12. ONDANSETRON HYDROCHLORIDE [Concomitant]
     Dosage: 4 MG, 4X/DAY
     Dates: start: 20120724
  13. FEXOFENADINE [Concomitant]
     Dosage: 180 MG, UNK
     Dates: start: 20120724
  14. RANITIDINE HYDROCHLORIDE [Concomitant]
     Dosage: 300 MG, (AT BEDTIME)
     Dates: start: 20120724
  15. TRIAZOLAM [Concomitant]
     Dosage: 0.25 MG, (AT BEDTIME)
     Dates: start: 20120724
  16. TRAMADOL HYDROCHLORIDE [Concomitant]
     Dosage: 100 MG, UNK, (50MG 2 AS REQUIRED PER PHYSICIAN^S DIRECTIONS)
     Dates: start: 20120724
  17. METHOTREXATE [Concomitant]
     Dosage: UNK
     Dates: start: 199205
  18. METHOTREXATE [Concomitant]
     Dosage: 25 MG, WEEKLY
     Dates: start: 20120710
  19. VITAMIN D [Concomitant]
     Dosage: 50000 IU, MONTHLY
     Dates: start: 20130129
  20. DICLOFENAC [Concomitant]
     Dosage: 75 MG, 2X/DAY (MORNING AND EVENING)
     Dates: start: 20130129
  21. ASPIRIN [Concomitant]
     Dosage: 81 MG, 1X/DAY
     Dates: start: 20130129
  22. OMEPRAZOLE [Concomitant]
     Dosage: 20 MG, 2X/DAY (MORNING AND EVENING)
     Dates: start: 20130129
  23. CYCLOBENZAPRINE [Concomitant]
     Dosage: 10, 1X/DAY EVERY DAY 8 PM
     Dates: start: 20130129

REACTIONS (5)
  - Tooth abscess [Recovered/Resolved]
  - Diabetes mellitus [Recovered/Resolved]
  - Arthritis [Recovered/Resolved]
  - Mouth ulceration [Recovered/Resolved]
  - Sinusitis [Recovered/Resolved]
